FAERS Safety Report 4809128-5 (Version None)
Quarter: 2005Q4

REPORT INFORMATION
  Report Type: 
  Country: None (occurrence: None)
  Receive Date: 20051021
  Receipt Date: 20020815
  Transmission Date: 20060501
  Serious: Yes (Hospitalization)
  Sender: FDA-Public Use
  Company Number: EWC020832068

PATIENT
  Age: 37 Year
  Sex: Male

DRUGS (6)
  1. OLANZAPINE [Suspect]
     Indication: MANIA
     Dosage: 40 MG/DAY
  2. OLANZAPINE [Suspect]
     Indication: PSYCHOTIC DISORDER
     Dosage: 40 MG/DAY
  3. VALPROATE SODIUM [Concomitant]
  4. THYROXINE [Concomitant]
  5. CLONAZEPAM [Concomitant]
  6. ZOPICLONE [Concomitant]

REACTIONS (2)
  - DRUG INEFFECTIVE [None]
  - PLATELET COUNT DECREASED [None]
